FAERS Safety Report 26141061 (Version 1)
Quarter: 2025Q4

REPORT INFORMATION
  Report Type: Spontaneous
  Country: US (occurrence: US)
  Receive Date: 20251210
  Receipt Date: 20251210
  Transmission Date: 20260117
  Serious: Yes (Hospitalization, Other)
  Sender: NOVO NORDISK
  Company Number: US-NOVOPROD-1579545

PATIENT
  Age: 66 Year
  Sex: Male

DRUGS (2)
  1. TRESIBA [Suspect]
     Active Substance: INSULIN DEGLUDEC
     Indication: Type 2 diabetes mellitus
     Dosage: 27 IU, QD
     Route: 058
  2. INSULIN NOS [Suspect]
     Active Substance: INSULIN NOS
     Indication: Product used for unknown indication
     Dosage: UNK

REACTIONS (8)
  - Renal impairment [Unknown]
  - Blood creatine increased [Unknown]
  - Oxygen saturation decreased [Recovered/Resolved]
  - Blindness [Recovered/Resolved]
  - Glaucoma [Recovered/Resolved]
  - Astigmatism [Recovered/Resolved]
  - Blood glucose decreased [Recovered/Resolved]
  - Fall [Unknown]

NARRATIVE: CASE EVENT DATE: 20230101
